FAERS Safety Report 4653122-4 (Version None)
Quarter: 2005Q2

REPORT INFORMATION
  Report Type: 
  Country: None (occurrence: None)
  Receive Date: 20050503
  Receipt Date: 20050421
  Transmission Date: 20051028
  Serious: Yes (Other)
  Sender: FDA-Public Use
  Company Number: 2005065489

PATIENT
  Age: 69 Year
  Sex: Male
  Weight: 81.6475 kg

DRUGS (8)
  1. ZOLOFT [Suspect]
     Indication: ANXIETY
     Dosage: 150 MG (EVERY DAY)
     Dates: start: 20010101
  2. ZOLOFT [Suspect]
     Indication: EMOTIONAL DISORDER
     Dosage: 150 MG (EVERY DAY)
     Dates: start: 20010101
  3. MIRAPEX [Suspect]
     Indication: RESTLESS LEGS SYNDROME
     Dates: start: 20000101
  4. TEMAZEPAM [Concomitant]
  5. LORAZEPAM [Concomitant]
  6. WARFARIN SODIUM [Concomitant]
  7. AMOXICILLIN [Concomitant]
  8. VITAMINS (VITAMINS) [Concomitant]

REACTIONS (5)
  - ANXIETY [None]
  - EMOTIONAL DISORDER [None]
  - INCONTINENCE [None]
  - NASOPHARYNGITIS [None]
  - PROSTATE CANCER [None]
